FAERS Safety Report 6173570-3 (Version None)
Quarter: 2009Q2

REPORT INFORMATION
  Report Type: 
  Country: None (occurrence: None)
  Receive Date: 20090430
  Receipt Date: 20090421
  Transmission Date: 20091009
  Serious: Yes (Other)
  Sender: FDA-Public Use
  Company Number: D0061369A

PATIENT
  Sex: Female

DRUGS (2)
  1. ADARTREL [Suspect]
     Route: 048
  2. CABERGOLINE [Suspect]
     Route: 065

REACTIONS (1)
  - PULMONARY FIBROSIS [None]
